FAERS Safety Report 10441131 (Version 1)
Quarter: 2014Q3

REPORT INFORMATION
  Report Type: Spontaneous
  Country: US (occurrence: None)
  Receive Date: 20140905
  Receipt Date: 20140905
  Transmission Date: 20150326
  Serious: Yes (Life-Threatening, Hospitalization)
  Sender: FDA-Public Use
  Company Number: NSR_01619_2014

PATIENT
  Age: 67 Year
  Sex: Male

DRUGS (7)
  1. TRAMADOL [Suspect]
     Active Substance: TRAMADOL
     Indication: ANALGESIC THERAPY
     Dosage: 3 DAYS UNTIL UNKNOWN
     Route: 048
  2. RASAGILINE [Suspect]
     Active Substance: RASAGILINE
     Indication: PRODUCT USED FOR UNKNOWN INDICATION
  3. CARBIDOPA/ LEVODOPA [Concomitant]
  4. AMANTADINE [Suspect]
     Active Substance: AMANTADINE
     Indication: PRODUCT USED FOR UNKNOWN INDICATION
     Route: 048
  5. ZIPRASIDONE [Suspect]
     Active Substance: ZIPRASIDONE
     Indication: HALLUCINATION
     Route: 048
  6. CLOZAPINE. [Concomitant]
     Active Substance: CLOZAPINE
  7. DEPAKOTE [Concomitant]
     Active Substance: DIVALPROEX SODIUM

REACTIONS (7)
  - Fall [None]
  - Rhabdomyolysis [None]
  - Arthralgia [None]
  - Back pain [None]
  - Renal failure acute [None]
  - Toxicity to various agents [None]
  - Serotonin syndrome [None]
